FAERS Safety Report 20921350 (Version 1)
Quarter: 2022Q2

REPORT INFORMATION
  Report Type: Report from Study
  Country: AU (occurrence: AU)
  Receive Date: 20220606
  Receipt Date: 20220606
  Transmission Date: 20220721
  Serious: Yes (Other)
  Sender: FDA-Public Use
  Company Number: AU-JNJFOC-20220556173

PATIENT
  Sex: Female

DRUGS (1)
  1. BORTEZOMIB [Suspect]
     Active Substance: BORTEZOMIB
     Indication: Cold type haemolytic anaemia
     Dosage: UNK
     Route: 042

REACTIONS (5)
  - Cardiac failure [Unknown]
  - Blood product transfusion dependent [Unknown]
  - Hypervolaemia [Unknown]
  - Iron overload [Unknown]
  - Off label use [Unknown]
